FAERS Safety Report 10722651 (Version 2)
Quarter: 2015Q1

REPORT INFORMATION
  Report Type: Spontaneous
  Country: US (occurrence: US)
  Receive Date: 20150120
  Receipt Date: 20150325
  Transmission Date: 20150721
  Serious: Yes (Other)
  Sender: FDA-Public Use
  Company Number: US-GLAXOSMITHKLINE-US2015GSK005072

PATIENT
  Age: 88 Year

DRUGS (1)
  1. ARZERRA [Suspect]
     Active Substance: OFATUMUMAB
     Indication: CHRONIC LYMPHOCYTIC LEUKAEMIA
     Dosage: 2000 MG, U
     Route: 042
     Dates: start: 20110419, end: 20110919

REACTIONS (1)
  - Gastrointestinal angiodysplasia [Unknown]

NARRATIVE: CASE EVENT DATE: 20110713
